FAERS Safety Report 17369342 (Version 1)
Quarter: 2020Q1

REPORT INFORMATION
  Report Type: Spontaneous
  Country: US (occurrence: US)
  Receive Date: 20200203
  Receipt Date: 20200203
  Transmission Date: 20200409
  Serious: Yes (Hospitalization)
  Sender: FDA-Public Use
  Company Number: None

PATIENT
  Age: 60 Year
  Sex: Female

DRUGS (10)
  1. HUMIRA [Suspect]
     Active Substance: ADALIMUMAB
     Indication: PSORIASIS
     Route: 058
     Dates: start: 20150708
  2. PRA MPEXOL E [Concomitant]
     Dates: start: 20200104
  3. CONTOUR [Concomitant]
     Dates: start: 20200113
  4. CLOPIDOGREL [Concomitant]
     Active Substance: CLOPIDOGREL BISULFATE
     Dates: start: 20191112
  5. ALBUTEROL. [Concomitant]
     Active Substance: ALBUTEROL
     Dates: start: 20200104
  6. METHOTREXATE. [Concomitant]
     Active Substance: METHOTREXATE
     Dates: start: 20190923
  7. IOSARTAN POT [Concomitant]
     Dates: start: 20190807, end: 20200203
  8. ROSUVASTATIN. [Concomitant]
     Active Substance: ROSUVASTATIN
     Dates: start: 20191108
  9. CARVEDILOL. [Concomitant]
     Active Substance: CARVEDILOL
     Dates: start: 20191015
  10. ARMOUR THYRO [Concomitant]
     Dates: start: 20191012

REACTIONS (1)
  - Therapy cessation [None]

NARRATIVE: CASE EVENT DATE: 20190905
